FAERS Safety Report 8290558 (Version 4)
Quarter: 2013Q2

REPORT INFORMATION
  Report Type: Spontaneous
  Country: US (occurrence: None)
  Receive Date: 20111122
  Receipt Date: 20130107
  Transmission Date: 20140414
  Serious: Yes (Other)
  Sender: FDA-Public Use
  Company Number: PHHY2011US54763

PATIENT
  Age: 50 Year
  Sex: Female

DRUGS (10)
  1. GILENYA [Suspect]
     Indication: MULTIPLE SCLEROSIS
     Route: 048
     Dates: start: 20110308
  2. GRAPE EXTRACT [Suspect]
  3. PRESTIQ [Concomitant]
  4. SOMA [Concomitant]
  5. BACLOFEN [Concomitant]
  6. OMEPRAZOLE [Concomitant]
  7. LIPOGEN (CHOLINE, INOSITOL, VITAMINS NOS) [Concomitant]
  8. B COMPLEX (NICOTINAMIDE, PYRIDOXINE HYDROCHLORIDE, RIBOFLAVIN, THIAMINE HYDROCHLORIDE) [Concomitant]
  9. FISH OIL (FISH OIL) [Concomitant]
  10. ZANTAC [Concomitant]

REACTIONS (16)
  - ORAL INFECTION [None]
  - SINUSITIS [None]
  - FLATULENCE [None]
  - ABDOMINAL DISTENSION [None]
  - ABDOMINAL DISCOMFORT [None]
  - RHINORRHOEA [None]
  - HEADACHE [None]
  - NASAL CONGESTION [None]
  - PRODUCTIVE COUGH [None]
  - OROPHARYNGEAL PAIN [None]
  - Memory impairment [None]
  - JC virus infection [None]
  - Asthenia [None]
  - Back pain [None]
  - Viral upper respiratory tract infection [None]
  - Nasopharyngitis [None]
